FAERS Safety Report 5419385-2 (Version None)
Quarter: 2007Q3

REPORT INFORMATION
  Report Type: 
  Country: None (occurrence: None)
  Receive Date: 20070820
  Receipt Date: 20070807
  Transmission Date: 20080115
  Serious: Yes (Life-Threatening)
  Sender: FDA-Public Use
  Company Number: GB-BAUSCH-2007BL002741

PATIENT
  Age: 79 Year
  Sex: Male
  Weight: 71 kg

DRUGS (7)
  1. PREDNISOLONE SODIUM PHOSPHATE [Suspect]
     Indication: COLITIS ULCERATIVE
     Route: 048
     Dates: start: 20070711, end: 20070712
  2. WARFARIN [Suspect]
     Indication: DEEP VEIN THROMBOSIS
     Route: 048
     Dates: start: 19970101
  3. AMLODIPINE [Concomitant]
     Indication: HYPERTENSION
     Route: 048
     Dates: start: 20020101
  4. BECLOMETHASONE DIPROPIONATE [Concomitant]
     Indication: ASTHMA
     Route: 049
     Dates: start: 20060101
  5. OMEPRAZOLE [Concomitant]
     Route: 048
     Dates: start: 20000101
  6. SULFASALAZINE [Concomitant]
     Indication: COLITIS ULCERATIVE
     Route: 048
     Dates: start: 19970101
  7. URSODIOL [Concomitant]
     Indication: COLITIS ULCERATIVE
     Route: 048
     Dates: start: 20040101

REACTIONS (2)
  - DRUG INTERACTION [None]
  - INTERNATIONAL NORMALISED RATIO INCREASED [None]
